FAERS Safety Report 5781959-7 (Version None)
Quarter: 2008Q2

REPORT INFORMATION
  Report Type: 
  Country: None (occurrence: None)
  Receive Date: 20080623
  Receipt Date: 20080228
  Transmission Date: 20081010
  Serious: No
  Sender: FDA-Public Use
  Company Number: US-ASTRAZENECA-2008UW04118

PATIENT
  Age: 90 Year
  Sex: Male
  Weight: 65.8 kg

DRUGS (4)
  1. RHINOCORT [Suspect]
     Indication: NASAL CONGESTION
     Dosage: 2 SPRAYS PER NOSTRIL
     Route: 045
     Dates: start: 20080228
  2. METOPROLOL [Concomitant]
  3. EYE DROPS [Concomitant]
     Indication: GLAUCOMA
  4. DOXAZOSIN MESYLATE [Concomitant]

REACTIONS (1)
  - ANURIA [None]
